FAERS Safety Report 21553991 (Version 2)
Quarter: 2022Q4

REPORT INFORMATION
  Report Type: Report from Study
  Country: NL (occurrence: NL)
  Receive Date: 20221104
  Receipt Date: 20221104
  Transmission Date: 20230113
  Serious: Yes (Life-Threatening)
  Sender: FDA-Public Use
  Company Number: NL-ASTELLAS-2022US039161

PATIENT
  Age: 64 Year
  Sex: Male

DRUGS (4)
  1. GILTERITINIB [Suspect]
     Active Substance: GILTERITINIB
     Indication: Acute myeloid leukaemia
     Route: 048
     Dates: start: 20220902, end: 20220916
  2. DAUNORUBICIN [Suspect]
     Active Substance: DAUNORUBICIN
     Indication: Acute myeloid leukaemia
     Dosage: 127.5 MG, OTHER (TOTAL DAILY DOSE)
     Route: 042
     Dates: start: 20220826, end: 20220828
  3. CYTARABINE [Suspect]
     Active Substance: CYTARABINE
     Indication: Acute myeloid leukaemia
     Dosage: 420 MG, OTHER (TOTAL DAILY DOSE)
     Route: 042
     Dates: start: 20220826, end: 20220901
  4. NADROPARIN CALCIUM [Concomitant]
     Active Substance: NADROPARIN CALCIUM
     Indication: Cerebral venous sinus thrombosis
     Route: 065
     Dates: start: 20220823, end: 20221007

REACTIONS (1)
  - Haemorrhage [Recovered/Resolved]

NARRATIVE: CASE EVENT DATE: 20221007
